FAERS Safety Report 11134948 (Version 1)
Quarter: 2015Q2

REPORT INFORMATION
  Report Type: Spontaneous
  Country: US (occurrence: US)
  Receive Date: 20150525
  Receipt Date: 20150525
  Transmission Date: 20150821
  Serious: No
  Sender: FDA-Public Use
  Company Number: US-DRREDDYS-USA/USA/15/0046656

PATIENT
  Sex: Female

DRUGS (1)
  1. SUMATRIPTAN INJECTION USP, 6 MG/0.5 ML [Suspect]
     Active Substance: SUMATRIPTAN
     Indication: MIGRAINE
     Dosage: ONE INJECTION SUBCUTANEOUSLY AT ONSET OF HEADACHE, MAY REPEAT AFTER 2 HOURS, NOT MORE THAN 2 INJECTI
     Route: 058
     Dates: start: 20150223

REACTIONS (2)
  - Product physical issue [Unknown]
  - Injection site haemorrhage [Recovered/Resolved]
